FAERS Safety Report 16705771 (Version 1)
Quarter: 2019Q3

REPORT INFORMATION
  Report Type: Spontaneous
  Country: US (occurrence: US)
  Receive Date: 20190815
  Receipt Date: 20190815
  Transmission Date: 20191004
  Serious: Yes (Other)
  Sender: FDA-Public Use
  Company Number: US-PFIZER INC-2019347385

PATIENT
  Age: 79 Year
  Sex: Male
  Weight: 80.73 kg

DRUGS (2)
  1. VFEND [Suspect]
     Active Substance: VORICONAZOLE
     Indication: BRONCHOPULMONARY ASPERGILLOSIS
     Dosage: UNK
     Route: 048
     Dates: start: 20181008, end: 2019
  2. VFEND [Suspect]
     Active Substance: VORICONAZOLE
     Dosage: 200 MG, EVERY 12 HOURS TWICE A DAY
     Route: 048
     Dates: start: 2019, end: 20190806

REACTIONS (4)
  - Paraesthesia [Recovered/Resolved]
  - Erythema [Recovered/Resolved]
  - Chapped lips [Recovered/Resolved]
  - Hyperaesthesia [Recovered/Resolved]

NARRATIVE: CASE EVENT DATE: 201905
